FAERS Safety Report 4544452-5 (Version None)
Quarter: 2004Q4

REPORT INFORMATION
  Report Type: 
  Country: None (occurrence: None)
  Receive Date: 20041230
  Receipt Date: 20041214
  Transmission Date: 20050328
  Serious: No
  Sender: FDA-Public Use
  Company Number: THYM-10387

PATIENT
  Sex: Male

DRUGS (1)
  1. THYMOGLOBULIN [Suspect]

REACTIONS (2)
  - ARTHRALGIA [None]
  - MYALGIA [None]
